FAERS Safety Report 4336680-9 (Version None)
Quarter: 2004Q2

REPORT INFORMATION
  Report Type: 
  Country: None (occurrence: None)
  Receive Date: 20040412
  Receipt Date: 20040303
  Transmission Date: 20050107
  Serious: Yes (Hospitalization)
  Sender: FDA-Public Use
  Company Number: DE-GLAXOSMITHKLINE-D0043288A

PATIENT
  Age: 14 Year
  Sex: Female
  Weight: 57 kg

DRUGS (2)
  1. SEROXAT [Suspect]
     Dosage: 35TAB SINGLE DOSE
     Route: 048
  2. DOXEPIN HCL [Suspect]
     Dosage: 20TAB SINGLE DOSE
     Route: 048

REACTIONS (4)
  - ASTHENIA [None]
  - FATIGUE [None]
  - SUICIDE ATTEMPT [None]
  - VOMITING [None]
